FAERS Safety Report 5075446-1 (Version None)
Quarter: 2006Q3

REPORT INFORMATION
  Report Type: 
  Country: None (occurrence: None)
  Receive Date: 20060809
  Receipt Date: 20060725
  Transmission Date: 20061208
  Serious: Yes (Other)
  Sender: FDA-Public Use
  Company Number: PHBS2006TR11172

PATIENT
  Age: 38 Year
  Sex: Female

DRUGS (9)
  1. CYCLOSPORINE [Suspect]
     Indication: RENAL TRANSPLANT
     Dosage: 100 MG/D
     Dates: start: 20030301
  2. PREDNISOLONE [Suspect]
     Indication: RENAL TRANSPLANT
     Dosage: 500 MG/D
  3. PREDNISOLONE [Suspect]
     Dosage: 30 MG/D
  4. PREDNISOLONE [Suspect]
     Dosage: 25 MG/D
  5. PREDNISOLONE [Suspect]
     Dosage: 15 MG/D
  6. PREDNISOLONE [Suspect]
     Dosage: 10 MG/D
  7. PREDNISOLONE [Suspect]
     Dosage: 5 MG/D
  8. MYCOPHENOLATE MOFETIL [Concomitant]
     Indication: RENAL TRANSPLANT
     Dosage: 2 G/D
  9. ZENAPAX [Concomitant]

REACTIONS (4)
  - MUSCULAR WEAKNESS [None]
  - MUSCULOSKELETAL PAIN [None]
  - OSTEONECROSIS [None]
  - PAIN IN EXTREMITY [None]
